FAERS Safety Report 8912083 (Version 2)
Quarter: 2013Q1

REPORT INFORMATION
  Report Type: Spontaneous
  Country: US (occurrence: None)
  Receive Date: 20121113
  Receipt Date: 20130212
  Transmission Date: 20140127
  Serious: Yes (Other)
  Sender: FDA-Public Use
  Company Number: ENT 2012-0156

PATIENT
  Age: 61 Year
  Sex: Male

DRUGS (1)
  1. COMTAN [Suspect]
     Indication: PARKINSON^S DISEASE
     Dosage: 1200 MG, 6 IN 1 D, ORAL

REACTIONS (8)
  - Cerebrovascular accident [None]
  - Prostate cancer [None]
  - Osteoarthritis [None]
  - Restless legs syndrome [None]
  - Hyperlipidaemia [None]
  - Plantar fasciitis [None]
  - Diabetes mellitus [None]
  - Hypertension [None]
